FAERS Safety Report 4750337-1 (Version None)
Quarter: 2005Q3

REPORT INFORMATION
  Report Type: 
  Country: None (occurrence: None)
  Receive Date: 20050818
  Receipt Date: 20050805
  Transmission Date: 20060218
  Serious: Yes (Hospitalization)
  Sender: FDA-Public Use
  Company Number: 2005EU001516

PATIENT
  Age: 59 Year
  Sex: Male

DRUGS (3)
  1. FK506(TACROLIMUS CAPSULES) [Suspect]
     Indication: LIVER TRANSPLANT
  2. MYCOPHENOLATE MOFETIL(MYCOPHENOLATE MOFETIL) [Suspect]
     Indication: LIVER TRANSPLANT
  3. CORTICOSTEROIDS [Suspect]
     Indication: LIVER TRANSPLANT

REACTIONS (3)
  - POST PROCEDURAL COMPLICATION [None]
  - WOUND DEHISCENCE [None]
  - WOUND EVISCERATION [None]
